FAERS Safety Report 18594421 (Version 1)
Quarter: 2020Q4

REPORT INFORMATION
  Report Type: Spontaneous
  Country: ES (occurrence: ES)
  Receive Date: 20201209
  Receipt Date: 20201209
  Transmission Date: 20210114
  Serious: Yes (Life-Threatening, Hospitalization)
  Sender: FDA-Public Use
  Company Number: ES-TEVA-2020-ES-1855398

PATIENT
  Age: 54 Year
  Sex: Female

DRUGS (1)
  1. CAPECITABINA [Suspect]
     Active Substance: CAPECITABINE
     Indication: COLON CANCER METASTATIC
     Dosage: 1800
     Route: 048
     Dates: start: 20201006, end: 20201110

REACTIONS (1)
  - Enteritis [Recovered/Resolved with Sequelae]

NARRATIVE: CASE EVENT DATE: 20201116
